FAERS Safety Report 9300624 (Version 1)
Quarter: 2013Q2

REPORT INFORMATION
  Report Type: Report from Study
  Country: US (occurrence: US)
  Receive Date: 20130521
  Receipt Date: 20130521
  Transmission Date: 20140414
  Serious: Yes (Death)
  Sender: FDA-Public Use
  Company Number: US-ASTELLAS-2013US005227

PATIENT
  Age: 88 Year
  Sex: Female

DRUGS (1)
  1. ERLOTINIB TABLET [Suspect]
     Indication: LUNG NEOPLASM MALIGNANT
     Dosage: 25 MG, UNKNOWN/D
     Route: 048
     Dates: start: 201208

REACTIONS (2)
  - Incorrect dose administered [Unknown]
  - Death [Fatal]
